FAERS Safety Report 7676969-9 (Version None)
Quarter: 2011Q3

REPORT INFORMATION
  Report Type: 
  Country: None (occurrence: None)
  Receive Date: 20110720
  Receipt Date: 20110720
  Transmission Date: 20111222
  Serious: Yes (Disabling)
  Sender: FDA-Public Use
  Company Number: None

PATIENT
  Age: 57 Year
  Sex: Female
  Weight: 107.9561 kg

DRUGS (1)
  1. CISPLATIN [Suspect]
     Indication: FALLOPIAN TUBE CANCER
     Dosage: 150MG ONE TIME INTRAPERITONEAL
     Route: 033
     Dates: start: 20110601, end: 20110602

REACTIONS (1)
  - PRODUCT DEPOSIT [None]
